FAERS Safety Report 20040332 (Version 1)
Quarter: 2021Q4

REPORT INFORMATION
  Report Type: Spontaneous
  Country: CA (occurrence: CA)
  Receive Date: 20211106
  Receipt Date: 20211106
  Transmission Date: 20220303
  Serious: Yes (Other)
  Sender: FDA-Public Use
  Company Number: CA-TEVA-2021-CA-1908778

PATIENT
  Age: 90 Year
  Sex: Female
  Weight: 49 kg

DRUGS (4)
  1. PREDNISONE [Suspect]
     Active Substance: PREDNISONE
     Indication: Product used for unknown indication
     Route: 065
  2. INFLIXIMAB [Suspect]
     Active Substance: INFLIXIMAB
     Indication: Crohn^s disease
     Route: 042
  3. MESALAMINE [Concomitant]
     Active Substance: MESALAMINE
     Route: 065
  4. Pfizer Inflectra (Infliximab) powder for injection [Concomitant]
     Indication: Crohn^s disease
     Dosage: 5 MG/KG ROUNDED UP DOSE AT EVERY 0, 2 AND 6 WEEKS AND THEN EVERY 8 WEEKS
     Route: 042
     Dates: start: 20210406

REACTIONS (3)
  - Delirium [Not Recovered/Not Resolved]
  - Cachexia [Not Recovered/Not Resolved]
  - Weight increased [Not Recovered/Not Resolved]
